FAERS Safety Report 9157921 (Version 2)
Quarter: 2013Q1

REPORT INFORMATION
  Report Type: Spontaneous
  Country: US (occurrence: US)
  Receive Date: 20130312
  Receipt Date: 20130314
  Transmission Date: 20140127
  Serious: Yes (Other)
  Sender: FDA-Public Use
  Company Number: US-ABBOTT-13P-163-1061289-00

PATIENT
  Age: 28 None
  Sex: Female
  Weight: 93.07 kg

DRUGS (4)
  1. HUMIRA [Suspect]
     Indication: RHEUMATOID ARTHRITIS
     Dates: start: 2011, end: 2012
  2. HUMIRA [Suspect]
     Dates: start: 2012, end: 201302
  3. PRENATAL VITAMINS [Concomitant]
     Indication: PRODUCT USED FOR UNKNOWN INDICATION
  4. BENADRYL [Concomitant]
     Indication: HYPERSENSITIVITY

REACTIONS (10)
  - Abortion spontaneous [Unknown]
  - Vaginal haemorrhage [Unknown]
  - Vomiting in pregnancy [Recovered/Resolved]
  - Food craving [Recovered/Resolved]
  - Drug ineffective [Recovered/Resolved]
  - Condition aggravated [Recovering/Resolving]
  - Vulvovaginal pain [Recovering/Resolving]
  - Insomnia [Recovered/Resolved]
  - Blood iron decreased [Unknown]
  - Vaginal lesion [Recovering/Resolving]
